FAERS Safety Report 18844819 (Version 1)
Quarter: 2021Q1

REPORT INFORMATION
  Report Type: Report from Study
  Country: US (occurrence: US)
  Receive Date: 20210203
  Receipt Date: 20210203
  Transmission Date: 20210419
  Serious: No
  Sender: FDA-Public Use
  Company Number: US-EXELIXIS-CABO-20033260

PATIENT
  Sex: Male

DRUGS (3)
  1. CABOMETYX [Suspect]
     Active Substance: CABOZANTINIB S-MALATE
     Indication: RENAL CANCER
     Dosage: 60 MG, QD
     Dates: start: 20200807, end: 20201006
  2. CABOMETYX [Suspect]
     Active Substance: CABOZANTINIB S-MALATE
     Indication: METASTASES TO LUNG
  3. CABOMETYX [Suspect]
     Active Substance: CABOZANTINIB S-MALATE
     Indication: METASTASES TO BONE
     Dosage: 40 MG, QD
     Dates: start: 20201019

REACTIONS (10)
  - Pain in extremity [Unknown]
  - Abdominal pain upper [Unknown]
  - Phlebitis [Unknown]
  - Dysphonia [Unknown]
  - Headache [Unknown]
  - Haemorrhoids [Unknown]
  - Hair colour changes [Not Recovered/Not Resolved]
  - Skin ulcer [Not Recovered/Not Resolved]
  - Constipation [Unknown]
  - Blister [Unknown]
